FAERS Safety Report 7827564-X (Version None)
Quarter: 2011Q4

REPORT INFORMATION
  Report Type: 
  Country: None (occurrence: None)
  Receive Date: 20111020
  Receipt Date: 20110929
  Transmission Date: 20120403
  Serious: No
  Sender: FDA-Public Use
  Company Number: US-BAYER-2011-098317

PATIENT
  Age: 64 Year
  Sex: Female

DRUGS (13)
  1. VESICARE [Concomitant]
     Dosage: 10 MG, UNK
  2. LEVOTHYROXINE SODIUM [Concomitant]
     Dosage: 200 ?G, UNK
  3. COMBIVENT [Concomitant]
  4. HYDROCODONE BITARTRATE [Concomitant]
  5. POTASSIUM [Concomitant]
     Dosage: 25 MEQ, UNK
  6. BETASERON [Suspect]
     Dosage: 0.3 MG, QOD
     Route: 058
  7. LISINOPRIL [Concomitant]
     Dosage: 10 MG, UNK
  8. CLONIDINE [Concomitant]
     Dosage: 0.1 MG, UNK
  9. ADVAIR DISKUS 100/50 [Concomitant]
     Dosage: 100/50
  10. OXYBUTYNIN [Concomitant]
     Dosage: 5 MG/5 ML
  11. HYDROCHLOROTHIAZIDE [Concomitant]
     Dosage: 25-50 MG
  12. ALENDRONATE SODIUM [Concomitant]
     Dosage: 10 MG, UNK
  13. VERAPAMIL [Concomitant]
     Dosage: 100 MG, UNK

REACTIONS (1)
  - INFLUENZA [None]
